FAERS Safety Report 14840380 (Version 1)
Quarter: 2018Q2

REPORT INFORMATION
  Report Type: Report from Study
  Country: US (occurrence: US)
  Receive Date: 20180503
  Receipt Date: 20180503
  Transmission Date: 20180711
  Serious: Yes (Hospitalization)
  Sender: FDA-Public Use
  Company Number: US-ROCHE-2116418

PATIENT
  Age: 48 Year
  Sex: Male
  Weight: 116 kg

DRUGS (3)
  1. OCREVUS [Suspect]
     Active Substance: OCRELIZUMAB
     Indication: MULTIPLE SCLEROSIS RELAPSE
     Dosage: FIRST OCREVUS INFUSION ;ONGOING: NO
     Route: 042
     Dates: start: 20180411, end: 20180411
  2. PRAVACOL [Concomitant]
     Active Substance: PRAVASTATIN SODIUM
     Dosage: YES
     Route: 065
  3. LISINOPRIL. [Concomitant]
     Active Substance: LISINOPRIL
     Indication: HYPERTENSION
     Dosage: YES
     Route: 065

REACTIONS (2)
  - Cellulitis [Not Recovered/Not Resolved]
  - Pain [Unknown]

NARRATIVE: CASE EVENT DATE: 20180425
